FAERS Safety Report 10233076 (Version 3)
Quarter: 2014Q4

REPORT INFORMATION
  Report Type: Spontaneous
  Country: JP (occurrence: JP)
  Receive Date: 20140612
  Receipt Date: 20141203
  Transmission Date: 20150528
  Serious: Yes (Hospitalization, Other)
  Sender: FDA-Public Use
  Company Number: US-ASTRAZENECA-2014SE40586

PATIENT
  Age: 56 Year
  Sex: Male
  Weight: 73 kg

DRUGS (18)
  1. ARTIST [Concomitant]
     Active Substance: CARVEDILOL
     Dosage: UNK
     Route: 048
  2. NOVORAPID [Concomitant]
     Active Substance: INSULIN ASPART
     Dosage: UNK
     Route: 050
  3. PELEX [Concomitant]
     Active Substance: CETYLPYRIDINIUM CHLORIDE\CHLORPHENIRAMINE MALEATE\GLYCYRRHIZINATE DIPOTASSIUM
     Dosage: UNK
     Route: 048
  4. EPLERENONE, PLACEBO [Suspect]
     Active Substance: EPLERENONE
     Indication: CARDIAC FAILURE CHRONIC
     Route: 048
     Dates: start: 20110625
  5. DIART [Suspect]
     Active Substance: AZOSEMIDE
     Indication: CARDIAC FAILURE CHRONIC
     Route: 048
  6. BAYASPIRIN [Concomitant]
     Active Substance: ASPIRIN
     Dosage: UNK
     Route: 048
  7. NORVASC [Suspect]
     Active Substance: AMLODIPINE BESYLATE
     Indication: HYPERTENSION
     Route: 048
  8. STICK ZENOL [Concomitant]
     Dosage: UNK
     Route: 065
  9. ALLERMIST [Concomitant]
     Active Substance: FLUTICASONE FUROATE
     Dosage: UNK
     Route: 065
  10. SIGMART [Concomitant]
     Active Substance: NICORANDIL
     Dosage: UNK
     Route: 048
  11. ZETIA [Concomitant]
     Active Substance: EZETIMIBE
     Dosage: UNK
     Route: 048
  12. LANTUS [Concomitant]
     Active Substance: INSULIN GLARGINE
     Dosage: UNK
     Route: 050
  13. NEUMETHYCOLE [Concomitant]
     Dosage: UNK
     Route: 065
  14. GOREI-SAN [Concomitant]
     Active Substance: HERBALS
     Dosage: UNK
     Route: 065
  15. BLOPRESS [Suspect]
     Active Substance: CANDESARTAN CILEXETIL
     Indication: CARDIAC FAILURE CHRONIC
     Route: 048
  16. WARFARIN [Concomitant]
     Active Substance: WARFARIN
     Dosage: UNK
     Route: 048
  17. ASPELLIN [Concomitant]
     Dosage: UNK
     Route: 065
  18. PARIET [Concomitant]
     Active Substance: RABEPRAZOLE SODIUM
     Dosage: UNK
     Route: 048

REACTIONS (4)
  - Renal impairment [Not Recovered/Not Resolved]
  - Cardiac failure [Recovered/Resolved]
  - Anaemia [None]
  - Lung disorder [None]

NARRATIVE: CASE EVENT DATE: 20120330
